FAERS Safety Report 6071546-8 (Version None)
Quarter: 2009Q1

REPORT INFORMATION
  Report Type: 
  Country: None (occurrence: None)
  Receive Date: 20090205
  Receipt Date: 20090205
  Transmission Date: 20090719
  Serious: No
  Sender: FDA-Public Use
  Company Number: None

PATIENT
  Sex: Female
  Weight: 64.4108 kg

DRUGS (1)
  1. VITAMIN-MINERAL COMPOUND TAB [Suspect]
     Dosage: 1 TABLET A DAY
     Dates: end: 20081102

REACTIONS (2)
  - FEELING ABNORMAL [None]
  - NAUSEA [None]
